FAERS Safety Report 10765275 (Version 2)
Quarter: 2015Q1

REPORT INFORMATION
  Report Type: Spontaneous
  Country: GB (occurrence: GB)
  Receive Date: 20150205
  Receipt Date: 20150211
  Transmission Date: 20150721
  Serious: Yes (Hospitalization, Other)
  Sender: FDA-Public Use
  Company Number: GB-AUROBINDO-AUR-APL-2015-00747

PATIENT
  Sex: Female

DRUGS (1)
  1. TERBINAFINE 250MG [Suspect]
     Active Substance: TERBINAFINE
     Indication: NAIL INFECTION
     Dosage: 250 MG, ONCE A DAY
     Route: 065

REACTIONS (19)
  - Nausea [Recovered/Resolved]
  - Jaundice cholestatic [Recovered/Resolved]
  - Pruritus [Recovered/Resolved]
  - Ocular icterus [Recovered/Resolved]
  - Abdominal tenderness [Recovered/Resolved]
  - Constipation [Recovered/Resolved]
  - Hepatitis [Recovered/Resolved]
  - Erythema nodosum [Recovered/Resolved]
  - Weight decreased [Recovered/Resolved]
  - Abdominal pain upper [Recovered/Resolved]
  - Skin lesion [Recovered/Resolved]
  - Chromaturia [Recovered/Resolved]
  - Rash pruritic [Recovered/Resolved]
  - Malaise [Recovered/Resolved]
  - Decreased appetite [Recovered/Resolved]
  - Rash maculo-papular [Recovered/Resolved]
  - Blood alkaline phosphatase increased [Recovered/Resolved]
  - Gamma-glutamyltransferase increased [Recovered/Resolved]
  - Blood bilirubin increased [Recovered/Resolved]
